FAERS Safety Report 11185600 (Version 1)
Quarter: 2015Q2

REPORT INFORMATION
  Report Type: Spontaneous
  Country: IT (occurrence: IT)
  Receive Date: 20150612
  Receipt Date: 20150612
  Transmission Date: 20150821
  Serious: Yes (Hospitalization)
  Sender: FDA-Public Use
  Company Number: IT-BAYER-2015-327761

PATIENT
  Age: 68 Year
  Sex: Male

DRUGS (2)
  1. CARDIOASPIRIN [Suspect]
     Active Substance: ASPIRIN
     Indication: THROMBOSIS PROPHYLAXIS
     Dosage: 1 UNIT DOSE, DAILY
     Route: 048
     Dates: start: 20150418, end: 20150512
  2. LERCANIDIPINE [Concomitant]
     Active Substance: LERCANIDIPINE
     Route: 048

REACTIONS (3)
  - Haemorrhagic anaemia [None]
  - Asthenia [None]
  - Melaena [None]

NARRATIVE: CASE EVENT DATE: 20150512
